FAERS Safety Report 11777653 (Version 1)
Quarter: 2015Q4

REPORT INFORMATION
  Report Type: Spontaneous
  Country: US (occurrence: None)
  Receive Date: 20151124
  Receipt Date: 20151124
  Transmission Date: 20160304
  Serious: No
  Sender: FDA-Public Use
  Company Number: None

PATIENT
  Age: 63 Year
  Sex: Male

DRUGS (14)
  1. ALPRAZOLAM. [Concomitant]
     Active Substance: ALPRAZOLAM
  2. BACLOFEN. [Concomitant]
     Active Substance: BACLOFEN
  3. GABAPENTIN. [Concomitant]
     Active Substance: GABAPENTIN
  4. METHOTREXATE [Concomitant]
     Active Substance: METHOTREXATE
  5. TIZANIDINE. [Concomitant]
     Active Substance: TIZANIDINE
  6. CITALOPRAM [Concomitant]
     Active Substance: CITALOPRAM HYDROBROMIDE
  7. HUMIRA [Suspect]
     Active Substance: ADALIMUMAB
     Indication: RHEUMATOID ARTHRITIS
     Dosage: 1 PEN EVERY OTHER WEEK  SUBCUTANEOUS
     Route: 058
     Dates: start: 20150727, end: 20151123
  8. TRAZODONE [Concomitant]
     Active Substance: TRAZODONE HYDROCHLORIDE
  9. PREDNISONE. [Concomitant]
     Active Substance: PREDNISONE
  10. TRAMADOL. [Concomitant]
     Active Substance: TRAMADOL
  11. METOPROLOL [Concomitant]
     Active Substance: METOPROLOL
  12. OXYCODONE [Concomitant]
     Active Substance: OXYCODONE
  13. HYDROCODONE/APAP [Concomitant]
     Active Substance: ACETAMINOPHEN\HYDROCODONE BITARTRATE
  14. METAXOLONE [Concomitant]
     Active Substance: METAXALONE

REACTIONS (1)
  - Amnesia [None]

NARRATIVE: CASE EVENT DATE: 20151123
